FAERS Safety Report 6418565-7 (Version None)
Quarter: 2009Q4

REPORT INFORMATION
  Report Type: 
  Country: None (occurrence: None)
  Receive Date: 20091028
  Receipt Date: 20091019
  Transmission Date: 20100525
  Serious: Yes (Hospitalization)
  Sender: FDA-Public Use
  Company Number: US-SANOFI-SYNTHELABO-A03200904267

PATIENT
  Sex: Female

DRUGS (3)
  1. AMIODARONE [Interacting]
     Indication: ATRIAL FIBRILLATION
     Dosage: UNK
     Route: 065
     Dates: start: 20090301, end: 20090823
  2. COUMADIN [Concomitant]
     Indication: ATRIAL FIBRILLATION
     Route: 065
  3. MULTAQ [Suspect]
     Indication: ATRIAL FIBRILLATION
     Route: 048
     Dates: start: 20090826, end: 20090921

REACTIONS (6)
  - DRUG INTERACTION [None]
  - HEADACHE [None]
  - INTERNATIONAL NORMALISED RATIO INCREASED [None]
  - INTERSTITIAL LUNG DISEASE [None]
  - PYREXIA [None]
  - RASH ERYTHEMATOUS [None]
